FAERS Safety Report 10563076 (Version 1)
Quarter: 2014Q4

REPORT INFORMATION
  Report Type: Spontaneous
  Country: US (occurrence: US)
  Receive Date: 20141104
  Receipt Date: 20141104
  Transmission Date: 20150529
  Serious: Yes (Disabling, Other)
  Sender: FDA-Public Use
  Company Number: US-PFIZER INC-2014300970

PATIENT
  Sex: Male

DRUGS (1)
  1. VIAGRA [Suspect]
     Active Substance: SILDENAFIL CITRATE
     Dosage: UNK

REACTIONS (6)
  - Ankle fracture [Unknown]
  - Skull fracture [Unknown]
  - Wrist fracture [Unknown]
  - Traumatic lung injury [Unknown]
  - Road traffic accident [Unknown]
  - Rib fracture [Unknown]
